FAERS Safety Report 4913625-1 (Version None)
Quarter: 2006Q1

REPORT INFORMATION
  Report Type: 
  Country: None (occurrence: None)
  Receive Date: 20060216
  Receipt Date: 20060120
  Transmission Date: 20060701
  Serious: Yes (Death)
  Sender: FDA-Public Use
  Company Number: JP-JNJFOC-20060105101

PATIENT
  Sex: Female

DRUGS (8)
  1. CRAVIT [Suspect]
     Indication: PNEUMONIA
     Route: 048
     Dates: start: 20051227, end: 20051231
  2. VFEND [Suspect]
     Indication: DRUG USE FOR UNKNOWN INDICATION
     Route: 048
     Dates: start: 20051018, end: 20051231
  3. ASPIRIN [Concomitant]
     Route: 048
  4. LASIX [Concomitant]
     Route: 048
  5. GASTER [Concomitant]
     Route: 048
  6. MEXITIL [Concomitant]
     Route: 048
  7. ALDACTONE [Concomitant]
     Route: 048
  8. ARICEPT [Concomitant]
     Route: 048

REACTIONS (1)
  - HYPOGLYCAEMIA [None]
